FAERS Safety Report 8959000 (Version 1)
Quarter: 2012Q4

REPORT INFORMATION
  Report Type: 
  Country: PL (occurrence: PL)
  Receive Date: 20121212
  Receipt Date: 20121212
  Transmission Date: 20130627
  Serious: Yes (Hospitalization)
  Sender: FDA-Public Use
  Company Number: PHHY2012PL112927

PATIENT
  Age: 55 Year
  Sex: Female
  Weight: 65 kg

DRUGS (12)
  1. SIMULECT [Suspect]
     Indication: RENAL TRANSPLANT
     Dosage: 20 mg, BID
     Route: 042
  2. MYFORTIC [Suspect]
     Indication: RENAL TRANSPLANT
     Dosage: 360 mg, BID2SDO
     Dates: start: 20121110
  3. SOLUMEDROL [Concomitant]
  4. PROGRAF [Concomitant]
     Dosage: 7 mg, 2 x1
  5. ENCORTON [Concomitant]
     Dosage: 1 DF, UNK
  6. VALCYTE [Concomitant]
     Dosage: 2 x 1 tablet
  7. RANIGAST [Concomitant]
     Dosage: 1 DF at night
  8. BETALOC ZOK [Concomitant]
     Dosage: 1 DF, UNK
  9. FUROSEMID//FUROSEMIDE [Concomitant]
     Dosage: 1 DF, UNK
  10. CALPEROS [Concomitant]
     Dosage: 3 x 2 g between meals
  11. ALFADIOL [Concomitant]
     Dosage: 1 ?g 2 x 1 tablet
  12. LAKTOMAG B6 [Concomitant]
     Dosage: 2 x 1 tablet

REACTIONS (5)
  - Irritable bowel syndrome [Unknown]
  - Atrial fibrillation [Unknown]
  - Glomerular filtration rate decreased [Unknown]
  - Electrolyte imbalance [Unknown]
  - Blood creatinine increased [Unknown]
